FAERS Safety Report 6058413-0 (Version None)
Quarter: 2009Q1

REPORT INFORMATION
  Report Type: 
  Country: None (occurrence: None)
  Receive Date: 20090127
  Receipt Date: 20081203
  Transmission Date: 20090719
  Serious: Yes (Disabling)
  Sender: FDA-Public Use
  Company Number: 2009AL000373

PATIENT
  Age: 85 Year
  Sex: Male

DRUGS (11)
  1. VERAPAMIL HCL [Suspect]
     Indication: ATRIAL FIBRILLATION
     Dosage: 40 MG;TID;PO
     Route: 048
     Dates: start: 20081001
  2. SIMVASTATIN [Concomitant]
  3. FUROSEMIDE [Concomitant]
  4. ACETYLSALICYLIC ACID SRT [Concomitant]
  5. LISINOPRIL [Concomitant]
  6. ACETAMINOPHEN W/ CODEINE [Concomitant]
  7. BRIMONIDINE [Concomitant]
  8. SALBUTAMOL [Concomitant]
  9. ALBUTEROL [Concomitant]
  10. ACETAMINOPHEN AND CODEINE PHOSPHATE [Concomitant]
  11. QVAR 40 [Concomitant]

REACTIONS (3)
  - BLOOD CREATINE PHOSPHOKINASE INCREASED [None]
  - MOVEMENT DISORDER [None]
  - MYOSITIS [None]
